FAERS Safety Report 11398896 (Version 1)
Quarter: 2015Q3

REPORT INFORMATION
  Report Type: Spontaneous
  Country: US (occurrence: None)
  Receive Date: 20150819
  Receipt Date: 20150819
  Transmission Date: 20151125
  Serious: Yes (Death, Hospitalization)
  Sender: FDA-Public Use
  Company Number: None

PATIENT
  Age: 65 Year
  Sex: Male
  Weight: 80.74 kg

DRUGS (2)
  1. STELARA [Suspect]
     Active Substance: USTEKINUMAB
     Indication: PSORIASIS
     Dosage: Q12W
     Dates: start: 20140207, end: 20150724
  2. PERCOCET [Concomitant]
     Active Substance: ACETAMINOPHEN\OXYCODONE HYDROCHLORIDE

REACTIONS (14)
  - Colitis [None]
  - Feeling cold [None]
  - Hypoaesthesia [None]
  - Dehydration [None]
  - Weight decreased [None]
  - Dyspnoea [None]
  - Pain [None]
  - Pyrexia [None]
  - Chills [None]
  - Arthralgia [None]
  - Movement disorder [None]
  - Dizziness [None]
  - Gait disturbance [None]
  - Asthenia [None]

NARRATIVE: CASE EVENT DATE: 20150814
